FAERS Safety Report 5799741-3 (Version None)
Quarter: 2008Q3

REPORT INFORMATION
  Report Type: 
  Country: None (occurrence: None)
  Receive Date: 20080703
  Receipt Date: 20080626
  Transmission Date: 20090109
  Serious: Yes (Other)
  Sender: FDA-Public Use
  Company Number: US-ASTRAZENECA-2008UW10579

PATIENT
  Age: 9426 Day

DRUGS (14)
  1. SEROQUEL [Suspect]
     Route: 048
     Dates: start: 20070821, end: 20071026
  2. SEROQUEL [Suspect]
     Route: 048
     Dates: start: 20071026, end: 20071030
  3. SEROQUEL [Suspect]
     Dates: start: 20071030, end: 20071120
  4. SEROQUEL [Suspect]
     Dates: start: 20071120, end: 20071130
  5. LOVENOX [Concomitant]
     Route: 033
     Dates: start: 20071002, end: 20071009
  6. WARFARIN SODIUM [Concomitant]
     Dates: start: 20071002, end: 20071009
  7. WARFARIN SODIUM [Concomitant]
     Dates: start: 20071010, end: 20071016
  8. WARFARIN SODIUM [Concomitant]
     Dates: start: 20071016, end: 20071022
  9. WARFARIN SODIUM [Concomitant]
     Dates: start: 20071022, end: 20071114
  10. DEPAKOTE [Concomitant]
     Dates: start: 20070815, end: 20070822
  11. DEPAKOTE [Concomitant]
     Dates: start: 20070914, end: 20071026
  12. DEPAKOTE [Concomitant]
     Dates: start: 20071026, end: 20071120
  13. FLAGYL [Concomitant]
     Dates: start: 20071026, end: 20071120
  14. AUGMENTIN '125' [Concomitant]
     Dates: start: 20071114, end: 20071120

REACTIONS (1)
  - NEUTROPENIA [None]
